FAERS Safety Report 11490564 (Version 2)
Quarter: 2017Q1

REPORT INFORMATION
  Report Type: Spontaneous
  Country: US (occurrence: US)
  Receive Date: 20150910
  Receipt Date: 20170113
  Transmission Date: 20170428
  Serious: Yes (Other)
  Sender: FDA-Public Use
  Company Number: US-ELI_LILLY_AND_COMPANY-US201509001343

PATIENT
  Sex: Male

DRUGS (2)
  1. CYMBALTA [Suspect]
     Active Substance: DULOXETINE HYDROCHLORIDE
     Indication: PRODUCT USED FOR UNKNOWN INDICATION
     Dosage: 1 DF, UNKNOWN
     Route: 065
  2. CYMBALTA [Suspect]
     Active Substance: DULOXETINE HYDROCHLORIDE
     Dosage: 60 MG, QD
     Route: 065
     Dates: start: 20120824

REACTIONS (16)
  - Confusional state [Unknown]
  - Dizziness [Unknown]
  - Withdrawal syndrome [Unknown]
  - Nausea [Unknown]
  - Agitation [Unknown]
  - Headache [Unknown]
  - Paraesthesia [Unknown]
  - Tremor [Unknown]
  - Seizure [Unknown]
  - Vomiting [Unknown]
  - Diarrhoea [Unknown]
  - Hyperhidrosis [Unknown]
  - Loss of consciousness [Unknown]
  - Nightmare [Unknown]
  - Sleep disorder [Unknown]
  - Insomnia [Unknown]
